FAERS Safety Report 20547037 (Version 2)
Quarter: 2022Q1

REPORT INFORMATION
  Report Type: Spontaneous
  Country: BR (occurrence: BR)
  Receive Date: 20220303
  Receipt Date: 20220310
  Transmission Date: 20220423
  Serious: Yes (Hospitalization, Other)
  Sender: FDA-Public Use
  Company Number: BR-PFM-2022-01674

PATIENT
  Age: 74 Year
  Sex: Female
  Weight: 63 kg

DRUGS (6)
  1. BRAFTOVI [Suspect]
     Active Substance: ENCORAFENIB
     Indication: Colorectal cancer
     Dosage: 300 MG
     Route: 048
     Dates: start: 20220207
  2. CETUXIMAB [Suspect]
     Active Substance: CETUXIMAB
     Indication: Colorectal cancer
     Dosage: 640 MG
     Route: 048
     Dates: start: 20220207
  3. DIPIRONA [METAMIZOLE SODIUM] [Concomitant]
     Dosage: UNK
     Route: 065
     Dates: start: 202003
  4. TRAMADOL [Concomitant]
     Active Substance: TRAMADOL
     Dosage: UNK
     Route: 065
     Dates: start: 20220110
  5. ONDANSETRON [Concomitant]
     Active Substance: ONDANSETRON
     Dosage: UNK
     Route: 065
     Dates: start: 20220107
  6. MORFINA [MORPHINE HYDROCHLORIDE] [Concomitant]
     Dosage: UNK
     Route: 065
     Dates: start: 20220111

REACTIONS (3)
  - Abdominal pain [Recovering/Resolving]
  - Renal vein thrombosis [Unknown]
  - Tumour thrombosis [Unknown]

NARRATIVE: CASE EVENT DATE: 20220213
